FAERS Safety Report 19777814 (Version 1)
Quarter: 2021Q3

REPORT INFORMATION
  Report Type: Spontaneous
  Country: NL (occurrence: NL)
  Receive Date: 20210902
  Receipt Date: 20210902
  Transmission Date: 20211014
  Serious: Yes (Other)
  Sender: FDA-Public Use
  Company Number: NL-MACLEODS PHARMACEUTICALS US LTD-MAC2021032541

PATIENT

DRUGS (7)
  1. LORAZEPAM. [Concomitant]
     Active Substance: LORAZEPAM
     Indication: DRUG WITHDRAWAL SYNDROME
     Dosage: 2 MILLIGRAM Q4H
     Route: 065
  2. SUFENTANIL [Concomitant]
     Active Substance: SUFENTANIL
     Indication: DRUG WITHDRAWAL SYNDROME
     Dosage: 10 MICROGRAM, Q.H., 10 ?G/HOUR
     Route: 065
  3. GAMMA?HYDROXYBUTYRIC ACID (GHB) [Concomitant]
     Indication: DRUG WITHDRAWAL SYNDROME
     Dosage: 2250 MILLIGRAM; Q2H
     Route: 065
  4. MIDAZOLAM. [Concomitant]
     Active Substance: MIDAZOLAM
     Indication: DRUG WITHDRAWAL SYNDROME
     Dosage: 5 MILLIGRAM, Q.H., CONTINUOUS INFUSION OF 5 MG/HOUR
     Route: 065
  5. QUETIAPINE 100 MG [Suspect]
     Active Substance: QUETIAPINE
     Indication: DRUG WITHDRAWAL SYNDROME
     Dosage: 100 MILLIGRAM, Q4H
     Route: 065
  6. ERYTHROMYCIN. [Suspect]
     Active Substance: ERYTHROMYCIN
     Indication: PRODUCT USED FOR UNKNOWN INDICATION
     Dosage: UNK
     Route: 065
  7. PROPOFOL. [Concomitant]
     Active Substance: PROPOFOL
     Indication: DRUG WITHDRAWAL SYNDROME
     Dosage: 2.9 MILLIGRAM/KILOGRAM, Q.H., 2.9 MG/KG/HOUR
     Route: 065

REACTIONS (2)
  - Rhabdomyolysis [Recovered/Resolved]
  - Hyperthermia [Recovered/Resolved]
